FAERS Safety Report 13967797 (Version 2)
Quarter: 2017Q4

REPORT INFORMATION
  Report Type: Spontaneous
  Country: US (occurrence: US)
  Receive Date: 20170914
  Receipt Date: 20171012
  Transmission Date: 20180320
  Serious: Yes (Life-Threatening, Hospitalization, Other)
  Sender: FDA-Public Use
  Company Number: US-SUN PHARMACEUTICAL INDUSTRIES LTD-2017US-149692

PATIENT
  Age: 40 Year
  Sex: Female

DRUGS (2)
  1. LOPERAMIDE [Suspect]
     Active Substance: LOPERAMIDE
     Indication: PRODUCT USED FOR UNKNOWN INDICATION
     Dosage: CHRONIC ABUSE OF HIGH DOSE
     Route: 065
  2. CIMETIDINE [Interacting]
     Active Substance: CIMETIDINE
     Indication: PRODUCT USED FOR UNKNOWN INDICATION
     Dosage: UNK
     Route: 048

REACTIONS (6)
  - Drug interaction [Unknown]
  - Torsade de pointes [Recovered/Resolved]
  - Cardiac arrest [Recovered/Resolved]
  - Electrocardiogram QT prolonged [Recovered/Resolved]
  - Drug abuse [Unknown]
  - Ventricular tachycardia [Recovered/Resolved]
